FAERS Safety Report 7558116-7 (Version None)
Quarter: 2011Q2

REPORT INFORMATION
  Report Type: 
  Country: None (occurrence: None)
  Receive Date: 20110620
  Receipt Date: 20110615
  Transmission Date: 20111010
  Serious: Yes (Hospitalization, Other)
  Sender: FDA-Public Use
  Company Number: DE-ABBOTT-11P-062-0721847-00

PATIENT
  Sex: Female
  Weight: 87 kg

DRUGS (5)
  1. EUTHYROX [Concomitant]
     Indication: HYPOTHYROIDISM
     Dosage: 50 MCG OD
     Route: 048
  2. AMITRIPTYLINE HCL [Concomitant]
     Indication: DEPRESSION
     Dosage: 25 MG OD
     Route: 048
  3. HYDROCHLOROTHIAZIDE [Concomitant]
     Indication: HYPERTENSION
     Dosage: 25 MG OD
     Route: 048
  4. HUMIRA [Suspect]
     Indication: PSORIATIC ARTHROPATHY
     Route: 058
     Dates: start: 20090715
  5. ANTITHROMBOTIC DRUG [Concomitant]
     Indication: THROMBOSIS PROPHYLAXIS
     Dates: start: 20110101

REACTIONS (2)
  - RHEUMATOID ARTHRITIS [None]
  - FOOT DEFORMITY [None]
